FAERS Safety Report 16270000 (Version 6)
Quarter: 2019Q2

REPORT INFORMATION
  Report Type: Spontaneous
  Country: US (occurrence: US)
  Receive Date: 20190503
  Receipt Date: 20190610
  Transmission Date: 20190711
  Serious: Yes (Other)
  Sender: FDA-Public Use
  Company Number: US-PFIZER INC-2019185212

PATIENT
  Age: 78 Year
  Sex: Female
  Weight: 54.4 kg

DRUGS (6)
  1. CELEBREX [Suspect]
     Active Substance: CELECOXIB
     Indication: ARTHRITIS
     Dosage: 200 MG, DAILY
     Route: 048
  2. SENNATAB [Concomitant]
     Indication: PAIN
     Dosage: UNK
  3. OXYCONTIN [Concomitant]
     Active Substance: OXYCODONE HYDROCHLORIDE
     Indication: PAIN
     Dosage: 5 MG, UNK (NO MORE THAN 6 A DAY)
     Route: 048
  4. METHADONE [Concomitant]
     Active Substance: METHADONE HYDROCHLORIDE
     Indication: PAIN
     Dosage: 10 MG, 2X/DAY
     Route: 048
     Dates: start: 201904
  5. OXYCODONE [Concomitant]
     Active Substance: OXYCODONE
  6. CELEBREX [Suspect]
     Active Substance: CELECOXIB
     Indication: BONE PAIN
     Dosage: 200 MG, 1X/DAY
     Route: 048

REACTIONS (17)
  - Withdrawal syndrome [Unknown]
  - Weight decreased [Not Recovered/Not Resolved]
  - Peripheral swelling [Unknown]
  - Movement disorder [Unknown]
  - Gastrointestinal disorder [Unknown]
  - Dysphonia [Unknown]
  - Pain [Not Recovered/Not Resolved]
  - Rib fracture [Unknown]
  - Scoliosis [Unknown]
  - Body height decreased [Unknown]
  - Insomnia [Unknown]
  - Lymphoedema [Not Recovered/Not Resolved]
  - Feeling abnormal [Unknown]
  - Spinal fracture [Unknown]
  - Bedridden [Recovering/Resolving]
  - Gait disturbance [Unknown]
  - Balance disorder [Unknown]

NARRATIVE: CASE EVENT DATE: 20180404
